FAERS Safety Report 9278960 (Version 1)
Quarter: 2013Q2

REPORT INFORMATION
  Report Type: Spontaneous
  Country: US (occurrence: US)
  Receive Date: 20130508
  Receipt Date: 20130508
  Transmission Date: 20140414
  Serious: Yes (Hospitalization)
  Sender: FDA-Public Use
  Company Number: US-BAYER-2013-056007

PATIENT
  Age: 24 Year
  Sex: Female
  Weight: 78.01 kg

DRUGS (9)
  1. YAZ [Suspect]
     Indication: CONTRACEPTION
  2. CIPROFLOXACIN [Concomitant]
     Indication: URINARY TRACT INFECTION
  3. ACETAMINOPHEN W/HYDROCODONE [Concomitant]
  4. LEVETIRACETAM [Concomitant]
  5. PSYLLIUM [Concomitant]
  6. DOCUSATE SODIUM\SENNOSIDES [Concomitant]
  7. KEPPRA [Concomitant]
     Route: 048
  8. ACETAMINOPHEN [Concomitant]
  9. MACRODANTIN [Concomitant]

REACTIONS (2)
  - Cerebral venous thrombosis [None]
  - Intracranial venous sinus thrombosis [None]
